FAERS Safety Report 10381330 (Version 2)
Quarter: 2015Q2

REPORT INFORMATION
  Report Type: Report from Study
  Country: US (occurrence: US)
  Receive Date: 20140813
  Receipt Date: 20150508
  Transmission Date: 20150821
  Serious: Yes (Death, Other)
  Sender: FDA-Public Use
  Company Number: US-ASTELLAS-2014US010098

PATIENT
  Age: 86 Year
  Sex: Female

DRUGS (2)
  1. ERLOTINIB [Suspect]
     Active Substance: ERLOTINIB
     Indication: NON-SMALL CELL LUNG CANCER
  2. ERLOTINIB [Suspect]
     Active Substance: ERLOTINIB
     Indication: MALIGNANT RESPIRATORY TRACT NEOPLASM
     Route: 048

REACTIONS (6)
  - Pleural effusion [Unknown]
  - Adenocarcinoma [Unknown]
  - Tumour thrombosis [Unknown]
  - Resuscitation [Unknown]
  - Somnolence [Unknown]
  - Death [Fatal]

NARRATIVE: CASE EVENT DATE: 20070604
